FAERS Safety Report 24162218 (Version 8)
Quarter: 2025Q2

REPORT INFORMATION
  Report Type: Report from Study
  Country: BE (occurrence: BE)
  Receive Date: 20240801
  Receipt Date: 20250409
  Transmission Date: 20250716
  Serious: Yes (Other)
  Sender: EXELIXIS
  Company Number: BE-IPSEN Group, Research and Development-2024-07869

PATIENT

DRUGS (37)
  1. CABOZANTINIB [Suspect]
     Active Substance: CABOZANTINIB
     Indication: Renal cell carcinoma
     Dosage: 40 MG, QD
     Route: 065
     Dates: start: 20240322, end: 20240717
  2. CABOZANTINIB [Suspect]
     Active Substance: CABOZANTINIB
     Dosage: 40 MG, QD
     Route: 065
     Dates: start: 20240720, end: 20240725
  3. CABOZANTINIB [Suspect]
     Active Substance: CABOZANTINIB
     Dosage: 20 MG, QD
     Route: 065
     Dates: start: 20240802, end: 20250112
  4. CABOZANTINIB [Suspect]
     Active Substance: CABOZANTINIB
     Dosage: 20 MG, QOD, EVERY OTHER DAY
     Route: 065
     Dates: start: 20250117
  5. NIVOLUMAB [Concomitant]
     Active Substance: NIVOLUMAB
     Dates: start: 20240322
  6. NIVOLUMAB [Concomitant]
     Active Substance: NIVOLUMAB
     Dates: start: 20240405
  7. NIVOLUMAB [Concomitant]
     Active Substance: NIVOLUMAB
     Dates: start: 20240419
  8. NIVOLUMAB [Concomitant]
     Active Substance: NIVOLUMAB
     Dates: start: 20240503
  9. NIVOLUMAB [Concomitant]
     Active Substance: NIVOLUMAB
     Dates: start: 20240517
  10. NIVOLUMAB [Concomitant]
     Active Substance: NIVOLUMAB
     Dates: start: 20240531
  11. NIVOLUMAB [Concomitant]
     Active Substance: NIVOLUMAB
     Dates: start: 20240614
  12. NIVOLUMAB [Concomitant]
     Active Substance: NIVOLUMAB
     Dates: start: 20240628
  13. NIVOLUMAB [Concomitant]
     Active Substance: NIVOLUMAB
     Dates: start: 20240719
  14. NIVOLUMAB [Concomitant]
     Active Substance: NIVOLUMAB
     Dates: start: 20240802
  15. NIVOLUMAB [Concomitant]
     Active Substance: NIVOLUMAB
     Dates: start: 20240816
  16. NIVOLUMAB [Concomitant]
     Active Substance: NIVOLUMAB
     Dates: start: 20240830
  17. NIVOLUMAB [Concomitant]
     Active Substance: NIVOLUMAB
     Dates: start: 20240913
  18. NIVOLUMAB [Concomitant]
     Active Substance: NIVOLUMAB
     Dates: start: 20240926
  19. NIVOLUMAB [Concomitant]
     Active Substance: NIVOLUMAB
     Dates: start: 20241011
  20. NIVOLUMAB [Concomitant]
     Active Substance: NIVOLUMAB
     Dates: start: 20241025
  21. NIVOLUMAB [Concomitant]
     Active Substance: NIVOLUMAB
     Dates: start: 20241108
  22. NIVOLUMAB [Concomitant]
     Active Substance: NIVOLUMAB
     Dates: start: 20241122
  23. NIVOLUMAB [Concomitant]
     Active Substance: NIVOLUMAB
     Dates: start: 20241206
  24. NIVOLUMAB [Concomitant]
     Active Substance: NIVOLUMAB
     Dates: start: 20241220
  25. NIVOLUMAB [Concomitant]
     Active Substance: NIVOLUMAB
     Dates: start: 20250103
  26. NIVOLUMAB [Concomitant]
     Active Substance: NIVOLUMAB
     Dates: start: 20250117
  27. NIVOLUMAB [Concomitant]
     Active Substance: NIVOLUMAB
     Dates: start: 20250131
  28. NIVOLUMAB [Concomitant]
     Active Substance: NIVOLUMAB
     Dates: start: 20250214
  29. NIVOLUMAB [Concomitant]
     Active Substance: NIVOLUMAB
     Dates: start: 20250228
  30. NIVOLUMAB [Concomitant]
     Active Substance: NIVOLUMAB
     Dates: start: 20250314
  31. CETIRIZINE [Concomitant]
     Active Substance: CETIRIZINE HYDROCHLORIDE
     Indication: Dermatitis
     Dosage: 10 MG, QD
     Route: 048
     Dates: start: 20240614, end: 20240901
  32. CLOBETASOL [Concomitant]
     Active Substance: CLOBETASOL
     Indication: Dermatitis
     Dosage: 0.05 %, TID, 3 TIMES PER DAY, ONGOING
     Route: 003
     Dates: start: 20240614
  33. MEDROL [Concomitant]
     Active Substance: METHYLPREDNISOLONE
     Indication: Dermatitis
     Dosage: 4 MG, QD
     Route: 048
     Dates: start: 20240729, end: 20240811
  34. MEDROL [Concomitant]
     Active Substance: METHYLPREDNISOLONE
     Dosage: 2 MG, QOD, ONGOING
     Route: 048
     Dates: start: 20240812
  35. Pantomed [Concomitant]
     Indication: Abdominal pain upper
     Dosage: 40 MG, BID, TWICE PER DAY
     Route: 048
     Dates: start: 20240701
  36. LEVOTHYROXINE [Concomitant]
     Active Substance: LEVOTHYROXINE
     Indication: Hypothyroidism
     Dosage: 50 UG, QD
     Route: 048
     Dates: start: 20240615, end: 20240909
  37. LEVOTHYROXINE [Concomitant]
     Active Substance: LEVOTHYROXINE
     Dosage: 25 UG, QD
     Route: 048
     Dates: start: 20241025

REACTIONS (5)
  - Colitis [Recovered/Resolved]
  - Dermatitis [Recovered/Resolved]
  - Mucosal inflammation [Not Recovered/Not Resolved]
  - Diarrhoea [Recovered/Resolved]
  - Hypertension [Recovering/Resolving]

NARRATIVE: CASE EVENT DATE: 20240430
